FAERS Safety Report 6664446-3 (Version None)
Quarter: 2010Q2

REPORT INFORMATION
  Report Type: 
  Country: None (occurrence: None)
  Receive Date: 20100401
  Receipt Date: 20100322
  Transmission Date: 20101027
  Serious: Yes (Death)
  Sender: FDA-Public Use
  Company Number: BE-ABBOTT-10P-013-0633351-00

PATIENT
  Sex: Male
  Weight: 60 kg

DRUGS (3)
  1. LUCRIN DEPOT 11.25 MG [Suspect]
     Indication: PROSTATE CANCER
     Dates: start: 20070516
  2. BICALUTAMIDE [Concomitant]
     Indication: DRUG USE FOR UNKNOWN INDICATION
     Dates: start: 20070508, end: 20070605
  3. BICALUTAMIDE [Concomitant]
     Dates: start: 20071113

REACTIONS (1)
  - HAEMORRHAGIC STROKE [None]
